FAERS Safety Report 7525694-3 (Version None)
Quarter: 2011Q2

REPORT INFORMATION
  Report Type: 
  Country: None (occurrence: None)
  Receive Date: 20110526
  Receipt Date: 20110513
  Transmission Date: 20111010
  Serious: Yes (Hospitalization)
  Sender: FDA-Public Use
  Company Number: 2011MA005880

PATIENT
  Age: 18 Year
  Sex: Female

DRUGS (6)
  1. MORPHINE [Concomitant]
  2. PROPOFOL [Concomitant]
  3. HALOPERIDOL LACTATE [Suspect]
     Indication: ANXIETY
     Dosage: 5 MG, 1X, IV
     Route: 042
  4. FENTANYL-100 [Concomitant]
  5. DROPERIDOL [Concomitant]
  6. ROPIVACAINE HYDROCHLORIDE [Concomitant]

REACTIONS (16)
  - NEUROLEPTIC MALIGNANT SYNDROME [None]
  - MUSCLE RIGIDITY [None]
  - PAIN [None]
  - CATATONIA [None]
  - SPEECH DISORDER [None]
  - TACHYPNOEA [None]
  - WAXY FLEXIBILITY [None]
  - DYSKINESIA [None]
  - TACHYCARDIA [None]
  - HYPERHIDROSIS [None]
  - DYSPNOEA [None]
  - PYREXIA [None]
  - MYOCLONUS [None]
  - THERAPEUTIC RESPONSE DECREASED [None]
  - PSYCHOMOTOR HYPERACTIVITY [None]
  - ANXIETY [None]
